FAERS Safety Report 16443392 (Version 3)
Quarter: 2020Q1

REPORT INFORMATION
  Report Type: Spontaneous
  Country: US (occurrence: US)
  Receive Date: 20190618
  Receipt Date: 20200116
  Transmission Date: 20200409
  Serious: Yes (Other)
  Sender: FDA-Public Use
  Company Number: US-PFIZER INC-2016182269

PATIENT
  Age: 55 Year
  Sex: Female
  Weight: 97.51 kg

DRUGS (3)
  1. REVATIO [Suspect]
     Active Substance: SILDENAFIL CITRATE
     Dosage: 80 MG, 3X/DAY (FOUR TABLETS, BY MOUTH, 3 TIMES A DAY)
     Route: 048
     Dates: start: 2007
  2. LETAIRIS [Concomitant]
     Active Substance: AMBRISENTAN
     Indication: PULMONARY HYPERTENSION
     Dosage: 5 MG, 1X/DAY
     Route: 048
  3. REVATIO [Suspect]
     Active Substance: SILDENAFIL CITRATE
     Indication: PULMONARY ARTERIAL HYPERTENSION
     Dosage: 80 MG, 3X/DAY (FOUR TABLETS, BY MOUTH, 3 TIMES A DAY)
     Route: 048
     Dates: start: 2007

REACTIONS (3)
  - Prescribed overdose [Not Recovered/Not Resolved]
  - Product prescribing error [Unknown]
  - Weight increased [Unknown]

NARRATIVE: CASE EVENT DATE: 201511
